FAERS Safety Report 18029430 (Version 1)
Quarter: 2020Q3

REPORT INFORMATION
  Report Type: Spontaneous
  Country: US (occurrence: US)
  Receive Date: 20200716
  Receipt Date: 20200716
  Transmission Date: 20201103
  Serious: No
  Sender: FDA-Public Use
  Company Number: US-BAYER-2020-138288

PATIENT
  Age: 27 Year
  Sex: Male

DRUGS (1)
  1. KOGENATE FS [Suspect]
     Active Substance: ANTIHEMOPHILIC FACTOR, HUMAN RECOMBINANT
     Indication: FACTOR VIII DEFICIENCY
     Dosage: 2000? 4000U, TIW ,MONDY, WEDNESDAY, FRIDAY
     Route: 042
     Dates: start: 20190208

REACTIONS (2)
  - Product supply issue [None]
  - Product dose omission issue [None]

NARRATIVE: CASE EVENT DATE: 2020
